FAERS Safety Report 24992482 (Version 2)
Quarter: 2025Q1

REPORT INFORMATION
  Report Type: Spontaneous
  Country: FR (occurrence: FR)
  Receive Date: 20250220
  Receipt Date: 20250313
  Transmission Date: 20250408
  Serious: Yes (Other)
  Sender: CIPLA
  Company Number: FR-AFSSAPS-AM2025000037

PATIENT

DRUGS (9)
  1. ESOMEPRAZOLE [Suspect]
     Active Substance: ESOMEPRAZOLE
     Route: 064
     Dates: start: 20240415, end: 20250109
  2. ELEXACAFTOR\IVACAFTOR\TEZACAFTOR [Suspect]
     Active Substance: ELEXACAFTOR\IVACAFTOR\TEZACAFTOR
     Route: 064
     Dates: start: 20240415, end: 20250109
  3. KALYDECO [Suspect]
     Active Substance: IVACAFTOR
     Route: 064
     Dates: start: 20240415, end: 20250109
  4. PANCRELIPASE [Suspect]
     Active Substance: PANCRELIPASE
     Route: 064
     Dates: start: 20240415, end: 20250109
  5. DESLORATADINE [Suspect]
     Active Substance: DESLORATADINE
     Route: 064
     Dates: start: 20240415, end: 20250109
  6. TRIAMCINOLONE [Suspect]
     Active Substance: TRIAMCINOLONE
     Route: 064
     Dates: start: 20240415, end: 20250109
  7. BUDESONIDE [Suspect]
     Active Substance: BUDESONIDE
     Route: 064
     Dates: start: 20240415, end: 20250109
  8. CHOLECALCIFEROL [Suspect]
     Active Substance: CHOLECALCIFEROL
     Route: 064
  9. FORMOTEROL FUMARATE DIHYDRATE [Suspect]
     Active Substance: FORMOTEROL FUMARATE DIHYDRATE
     Route: 064
     Dates: start: 20240415, end: 20250109

REACTIONS (2)
  - Pericardial effusion [Recovered/Resolved]
  - Foetal exposure during pregnancy [Unknown]

NARRATIVE: CASE EVENT DATE: 20240415
